FAERS Safety Report 16198944 (Version 1)
Quarter: 2019Q2

REPORT INFORMATION
  Report Type: Report from Study
  Country: US (occurrence: US)
  Receive Date: 20190415
  Receipt Date: 20190415
  Transmission Date: 20190711
  Serious: Yes (Death)
  Sender: FDA-Public Use
  Company Number: US-ASTRAZENECA-2019SE56188

PATIENT
  Age: 30438 Day
  Sex: Female
  Weight: 38.1 kg

DRUGS (1)
  1. TAGRISSO [Suspect]
     Active Substance: OSIMERTINIB
     Route: 048
     Dates: start: 20180923

REACTIONS (1)
  - Death [Fatal]

NARRATIVE: CASE EVENT DATE: 20190201
